FAERS Safety Report 10777562 (Version 2)
Quarter: 2015Q2

REPORT INFORMATION
  Report Type: Spontaneous
  Country: US (occurrence: US)
  Receive Date: 20150209
  Receipt Date: 20150521
  Transmission Date: 20150821
  Serious: Yes (Hospitalization, Other)
  Sender: FDA-Public Use
  Company Number: US-ELI_LILLY_AND_COMPANY-US201501010519

PATIENT
  Age: 52 Year
  Sex: Male
  Weight: 83.45 kg

DRUGS (1)
  1. AXIRON [Suspect]
     Active Substance: TESTOSTERONE
     Indication: BLOOD TESTOSTERONE DECREASED
     Dosage: UNK, UNKNOWN
     Route: 065
     Dates: start: 20130601, end: 20130624

REACTIONS (7)
  - Acute myocardial infarction [Not Recovered/Not Resolved]
  - Dyslipidaemia [Unknown]
  - Increased tendency to bruise [Not Recovered/Not Resolved]
  - Coronary artery occlusion [Unknown]
  - Off label use [Unknown]
  - Coronary artery stenosis [Unknown]
  - Depression [Not Recovered/Not Resolved]

NARRATIVE: CASE EVENT DATE: 20130624
